FAERS Safety Report 13873538 (Version 4)
Quarter: 2019Q2

REPORT INFORMATION
  Report Type: Spontaneous
  Country: US (occurrence: US)
  Receive Date: 20170816
  Receipt Date: 20190402
  Transmission Date: 20190711
  Serious: No
  Sender: FDA-Public Use
  Company Number: US-ASTRAZENECA-2017SE81874

PATIENT
  Age: 22525 Day
  Sex: Male
  Weight: 93.9 kg

DRUGS (8)
  1. BYETTA [Suspect]
     Active Substance: EXENATIDE
     Indication: DIABETES MELLITUS
     Route: 058
     Dates: end: 201803
  2. BYDUREON [Suspect]
     Active Substance: EXENATIDE
     Indication: DIABETES MELLITUS
     Dosage: ONCE EACH WEEK
     Route: 058
     Dates: start: 20180924
  3. BYETTA [Suspect]
     Active Substance: EXENATIDE
     Indication: TYPE 2 DIABETES MELLITUS
     Dosage: 10 MG IN THE MORNING AND 5 MG IN THE EVENING
     Route: 058
     Dates: start: 201803, end: 20180903
  4. BYETTA [Suspect]
     Active Substance: EXENATIDE
     Indication: DIABETES MELLITUS
     Route: 058
  5. BYETTA [Suspect]
     Active Substance: EXENATIDE
     Indication: TYPE 2 DIABETES MELLITUS
     Route: 058
     Dates: end: 201803
  6. BYETTA [Suspect]
     Active Substance: EXENATIDE
     Indication: TYPE 2 DIABETES MELLITUS
     Route: 058
  7. BYETTA [Suspect]
     Active Substance: EXENATIDE
     Indication: DIABETES MELLITUS
     Dosage: 10 MG IN THE MORNING AND 5 MG IN THE EVENING
     Route: 058
     Dates: start: 201803, end: 20180903
  8. BYDUREON BCISE [Suspect]
     Active Substance: EXENATIDE
     Indication: DIABETES MELLITUS
     Dosage: ONCE EACH WEEK
     Route: 065
     Dates: start: 20180903, end: 20180924

REACTIONS (14)
  - Injection site bruising [Unknown]
  - Injection site vesicles [Unknown]
  - Abdominal discomfort [Recovered/Resolved]
  - Blood glucose abnormal [Unknown]
  - Vomiting [Recovered/Resolved]
  - Injection site discomfort [Unknown]
  - Injection site urticaria [Unknown]
  - Injection site extravasation [Unknown]
  - Incorrect route of product administration [Not Recovered/Not Resolved]
  - Myalgia [Unknown]
  - Nausea [Recovered/Resolved]
  - Device dispensing error [Not Recovered/Not Resolved]
  - Acne [Unknown]
  - Incorrect dose administered by device [Unknown]

NARRATIVE: CASE EVENT DATE: 20180903
